FAERS Safety Report 5353210-3 (Version None)
Quarter: 2007Q2

REPORT INFORMATION
  Report Type: 
  Country: None (occurrence: None)
  Receive Date: 20070608
  Receipt Date: 20070604
  Transmission Date: 20071010
  Serious: Yes (Death, Hospitalization)
  Sender: FDA-Public Use
  Company Number: 163-20785-06070174

PATIENT
  Age: 85 Year
  Sex: Female

DRUGS (2)
  1. THALOMID [Suspect]
     Indication: MYELODYSPLASTIC SYNDROME
     Dosage: SEE IMAGE
     Route: 048
     Dates: start: 20040101, end: 20040701
  2. THALOMID [Suspect]
     Indication: MYELODYSPLASTIC SYNDROME
     Dosage: SEE IMAGE
     Route: 048
     Dates: start: 20040801

REACTIONS (5)
  - ARTERIOSCLEROSIS [None]
  - BACK PAIN [None]
  - CARDIO-RESPIRATORY ARREST [None]
  - CHEST PAIN [None]
  - OSTEOPOROTIC FRACTURE [None]
